FAERS Safety Report 16255895 (Version 1)
Quarter: 2019Q2

REPORT INFORMATION
  Report Type: Spontaneous
  Country: US (occurrence: US)
  Receive Date: 20190430
  Receipt Date: 20190430
  Transmission Date: 20190711
  Serious: No
  Sender: FDA-Public Use
  Company Number: US-PFIZER INC-2019149071

PATIENT
  Sex: Female

DRUGS (1)
  1. DIAZEPAM. [Suspect]
     Active Substance: DIAZEPAM
     Dosage: UNK [CUTS GENERIC DIAZEPAM IN 4 AND ONLY TAKES A QUARTER]

REACTIONS (2)
  - Intentional product use issue [Unknown]
  - Fear [Unknown]
